FAERS Safety Report 9165338 (Version 3)
Quarter: 2013Q3

REPORT INFORMATION
  Report Type: Spontaneous
  Country: JP (occurrence: None)
  Receive Date: 20130301
  Receipt Date: 20130702
  Transmission Date: 20140515
  Serious: Yes (Disabling)
  Sender: FDA-Public Use
  Company Number: TCI2013A01081

PATIENT
  Age: 78 Year
  Sex: Male

DRUGS (9)
  1. ACTOS [Suspect]
     Indication: TYPE 2 DIABETES MELLITUS
     Dosage: 7.5 MG (7.5 MG, 1 IN 1 D)
     Dates: start: 201212, end: 20130213
  2. LYRICA (PREGABALIN) [Suspect]
     Indication: NEURALGIA
     Dosage: 150 MG (75 MG 2 IN 1 D)
     Dates: end: 20130213
  3. XYZAL [Suspect]
     Indication: SEASONAL ALLERGY
     Dosage: 5 MG (5 MG, 1 IN 1 D)
     Dates: start: 201301, end: 20130213
  4. REBAMIPIDE [Concomitant]
  5. SIGMART (NICORANDIL) [Concomitant]
  6. MICARDIS (TELMISARTAN) [Concomitant]
  7. EDIROL (ELDECALCITOL) (VITAMIN D AND ANALOGUES) [Concomitant]
  8. BONALDON (ALENDRONATE SODIUM) [Concomitant]
  9. OKIMINAS (LOXOPROFEN SODIUM) [Concomitant]

REACTIONS (1)
  - Interstitial lung disease [None]
